FAERS Safety Report 7500966-7 (Version None)
Quarter: 2011Q2

REPORT INFORMATION
  Report Type: 
  Country: None (occurrence: None)
  Receive Date: 20110524
  Receipt Date: 20110512
  Transmission Date: 20111010
  Serious: Yes (Death)
  Sender: FDA-Public Use
  Company Number: US-PFIZER INC-2010168239

PATIENT
  Age: 77 Year
  Sex: Female
  Weight: 55 kg

DRUGS (2)
  1. TORISEL [Suspect]
     Indication: MANTLE CELL LYMPHOMA
     Dosage: 25 MG OVER 30 MINUTES DAYS 1,8, 15,22 EVERY 4 WEEKS
     Route: 042
     Dates: start: 20061016, end: 20070912
  2. RITUXIMAB [Suspect]
     Indication: MANTLE CELL LYMPHOMA
     Dosage: 375 MG/M2 ON DAY 1, 8, 15, 22 OF CYCLE 1, THEN ON DAY 1 OF CYCLES 3,5,7,9,11 ONLY
     Route: 042
     Dates: start: 20061016, end: 20070530

REACTIONS (2)
  - MYELODYSPLASTIC SYNDROME [None]
  - NEOPLASM MALIGNANT [None]
